FAERS Safety Report 6432028-4 (Version None)
Quarter: 2009Q4

REPORT INFORMATION
  Report Type: 
  Country: None (occurrence: None)
  Receive Date: 20091109
  Receipt Date: 20091030
  Transmission Date: 20100525
  Serious: No
  Sender: FDA-Public Use
  Company Number: US-BAYER-200935693NA

PATIENT
  Age: 63 Year
  Sex: Male

DRUGS (4)
  1. LEVITRA [Suspect]
     Indication: ERECTILE DYSFUNCTION
     Dosage: 10 MG OR 20 MG DOSE
     Dates: start: 20090901
  2. LEVITRA [Suspect]
     Dosage: 10 MG OR 20 MG DOSE
     Dates: start: 20091007
  3. ALEVE-D SINUS + COLD [Concomitant]
  4. POTASSIUM CITRATE [Concomitant]

REACTIONS (5)
  - DIZZINESS [None]
  - FACE OEDEMA [None]
  - NASAL CONGESTION [None]
  - RHINORRHOEA [None]
  - TINNITUS [None]
